FAERS Safety Report 9858883 (Version 2)
Quarter: 2014Q1

REPORT INFORMATION
  Report Type: Spontaneous
  Country: TR (occurrence: TR)
  Receive Date: 20140131
  Receipt Date: 20140318
  Transmission Date: 20141002
  Serious: Yes (Other)
  Sender: FDA-Public Use
  Company Number: PHHY2014TR008990

PATIENT
  Age: 3 Year
  Sex: Female
  Weight: 15 kg

DRUGS (11)
  1. PROPOFOL [Suspect]
     Indication: GENERAL ANAESTHESIA
     Dosage: 2 MG/KG, UNK
  2. FENTANYL [Suspect]
     Indication: GENERAL ANAESTHESIA
     Dosage: 1 UG/KG (1 MCG/KG )
  3. ROCURONIUM BROMIDE [Suspect]
     Indication: GENERAL ANAESTHESIA
     Dosage: 0.8 MG/KG, UNK
  4. NITROUS OXIDE [Suspect]
     Indication: GENERAL ANAESTHESIA
  5. SEVOFLURANE [Suspect]
     Indication: GENERAL ANAESTHESIA
  6. CEFTRIAXONE [Concomitant]
     Dosage: 500 MG, UNK
     Route: 042
  7. CEFTRIAXONE [Concomitant]
     Dosage: 50 MG/KG, UNK
  8. MANNITOL [Concomitant]
     Route: 042
  9. DEXAMETHASONE [Concomitant]
     Route: 042
  10. DEXAMETHASONE [Concomitant]
     Dosage: 4 MG, UNK
  11. DEXAMETHASONE [Concomitant]
     Dosage: 1 MG, Q48H

REACTIONS (8)
  - VIIth nerve paralysis [Recovering/Resolving]
  - Sialoadenitis [Recovering/Resolving]
  - Salivary gland enlargement [Recovering/Resolving]
  - Local swelling [Recovering/Resolving]
  - Swelling face [Recovering/Resolving]
  - Oedema [Recovering/Resolving]
  - Parotid gland enlargement [Recovering/Resolving]
  - Erythema [Recovering/Resolving]
